FAERS Safety Report 6044019-6 (Version None)
Quarter: 2009Q1

REPORT INFORMATION
  Report Type: 
  Country: None (occurrence: None)
  Receive Date: 20090114
  Receipt Date: 20090114
  Transmission Date: 20090719
  Serious: Yes (Hospitalization)
  Sender: FDA-Public Use
  Company Number: None

PATIENT
  Age: 62 Year
  Sex: Male
  Weight: 80 kg

DRUGS (2)
  1. RITUXIMAB [Suspect]
     Indication: CHRONIC LYMPHOCYTIC LEUKAEMIA
     Dosage: 785 MG ONE TIME IV BOLUS
     Route: 042
     Dates: start: 20080822, end: 20080822
  2. LISINOPRIL [Concomitant]

REACTIONS (7)
  - CHILLS [None]
  - DROOLING [None]
  - HYPOTENSION [None]
  - INFUSION RELATED REACTION [None]
  - NAUSEA [None]
  - SYNCOPE [None]
  - UNRESPONSIVE TO STIMULI [None]
